FAERS Safety Report 24166477 (Version 1)
Quarter: 2024Q3

REPORT INFORMATION
  Report Type: Spontaneous
  Country: US (occurrence: US)
  Receive Date: 20240802
  Receipt Date: 20240802
  Transmission Date: 20241017
  Serious: Yes (Other)
  Sender: STRIDES
  Company Number: US-STRIDES ARCOLAB LIMITED-2024SP000110

PATIENT
  Age: 63 Year
  Sex: Male

DRUGS (6)
  1. KETOCONAZOLE [Suspect]
     Active Substance: KETOCONAZOLE
     Indication: Hypercalcaemia
     Dosage: UNK
     Route: 065
  2. KETOCONAZOLE [Suspect]
     Active Substance: KETOCONAZOLE
     Indication: Pneumocystis jirovecii pneumonia
  3. MIACALCIN [Suspect]
     Active Substance: CALCITONIN SALMON
     Indication: Hypercalcaemia
     Dosage: UNK
     Route: 065
  4. MIACALCIN [Suspect]
     Active Substance: CALCITONIN SALMON
     Indication: Pneumocystis jirovecii pneumonia
  5. SALINE [Suspect]
     Active Substance: SODIUM CHLORIDE
     Indication: Hypercalcaemia
     Dosage: UNK
     Route: 042
  6. SALINE [Suspect]
     Active Substance: SODIUM CHLORIDE
     Indication: Pneumocystis jirovecii pneumonia

REACTIONS (2)
  - Treatment failure [Unknown]
  - Off label use [Unknown]
